FAERS Safety Report 21009211 (Version 3)
Quarter: 2025Q1

REPORT INFORMATION
  Report Type: Spontaneous
  Country: US (occurrence: US)
  Receive Date: 20220627
  Receipt Date: 20250221
  Transmission Date: 20250409
  Serious: Yes (Other)
  Sender: SANOFI AVENTIS
  Company Number: US-SA-SAC20220622001796

PATIENT
  Age: 69 Year
  Sex: Male

DRUGS (2)
  1. DUPIXENT [Suspect]
     Active Substance: DUPILUMAB
     Indication: Dermatitis atopic
     Route: 058
     Dates: start: 202204, end: 202204
  2. DUPIXENT [Suspect]
     Active Substance: DUPILUMAB
     Indication: Pruritus
     Dosage: 300 MG, QOW
     Route: 058
     Dates: start: 2022

REACTIONS (6)
  - Pneumonia [Unknown]
  - Dyspnoea [Unknown]
  - Dermatitis atopic [Unknown]
  - Rash pruritic [Unknown]
  - Product use in unapproved indication [Unknown]
  - Off label use [Unknown]

NARRATIVE: CASE EVENT DATE: 20220401
